FAERS Safety Report 10709407 (Version 1)
Quarter: 2015Q1

REPORT INFORMATION
  Report Type: Spontaneous
  Country: US (occurrence: None)
  Receive Date: 20150113
  Receipt Date: 20150113
  Transmission Date: 20150721
  Serious: Yes (Hospitalization, Other)
  Sender: FDA-Public Use
  Company Number: None

PATIENT
  Age: 37 Year
  Sex: Female
  Weight: 56.7 kg

DRUGS (4)
  1. HALDOL [Suspect]
     Active Substance: HALOPERIDOL
     Indication: BIPOLAR DISORDER
     Dosage: 1 MG 1/2 PILL MOUTH
     Route: 048
     Dates: start: 20120101
  2. VISTARIL [Suspect]
     Active Substance: HYDROXYZINE PAMOATE
  3. HALDOL [Concomitant]
     Active Substance: HALOPERIDOL
  4. LAMICTAL [Suspect]
     Active Substance: LAMOTRIGINE

REACTIONS (2)
  - Unevaluable event [None]
  - Hyperhidrosis [None]

NARRATIVE: CASE EVENT DATE: 20140808
